FAERS Safety Report 18442185 (Version 3)
Quarter: 2020Q4

REPORT INFORMATION
  Report Type: Spontaneous
  Country: US (occurrence: US)
  Receive Date: 20201029
  Receipt Date: 20201127
  Transmission Date: 20210114
  Serious: No
  Sender: FDA-Public Use
  Company Number: US-ASTRAZENECA-2020SF30050

PATIENT
  Age: 23076 Day
  Sex: Female
  Weight: 68 kg

DRUGS (1)
  1. SYMBICORT [Suspect]
     Active Substance: BUDESONIDE\FORMOTEROL FUMARATE DIHYDRATE
     Indication: ASTHMA
     Dosage: 160-4.5 2 PUFFS TWICE A DAY
     Route: 055
     Dates: start: 2016

REACTIONS (6)
  - Device defective [Unknown]
  - Asthma [Recovered/Resolved]
  - Incorrect route of product administration [Unknown]
  - Drug dose omission by device [Unknown]
  - Product use issue [Unknown]
  - Feeling abnormal [Recovering/Resolving]

NARRATIVE: CASE EVENT DATE: 20200920
